FAERS Safety Report 20459828 (Version 3)
Quarter: 2022Q2

REPORT INFORMATION
  Report Type: Report from Study
  Country: GB (occurrence: None)
  Receive Date: 20220211
  Receipt Date: 20220411
  Transmission Date: 20220720
  Serious: Yes (Hospitalization)
  Sender: FDA-Public Use
  Company Number: GB-ROCHE-3016051

PATIENT
  Age: 83 Year
  Sex: Male
  Weight: 61 kg

DRUGS (6)
  1. ATEZOLIZUMAB [Suspect]
     Active Substance: ATEZOLIZUMAB
     Indication: Pleural mesothelioma malignant
     Dosage: D1Q3W; 1200 MG/20 ML
     Route: 041
  2. BEVACIZUMAB [Suspect]
     Active Substance: BEVACIZUMAB
     Indication: Pleural mesothelioma malignant
     Dosage: D1Q3W; 400 MG/16 ML
     Route: 042
  3. CARBOPLATIN [Suspect]
     Active Substance: CARBOPLATIN
     Indication: Pleural mesothelioma malignant
     Dosage: D1Q3W; 4-6 CYCLES
     Route: 042
  4. PEMETREXED [Suspect]
     Active Substance: PEMETREXED
     Indication: Pleural mesothelioma malignant
     Dosage: D1Q3W; 4-6 CYCLES
     Route: 042
  5. POTASSIUM [Concomitant]
     Active Substance: POTASSIUM
  6. MAGNESIUM [Concomitant]
     Active Substance: MAGNESIUM

REACTIONS (1)
  - Diarrhoea [Unknown]

NARRATIVE: CASE EVENT DATE: 20220116
